FAERS Safety Report 7105025-3 (Version None)
Quarter: 2010Q4

REPORT INFORMATION
  Report Type: 
  Country: None (occurrence: None)
  Receive Date: 20101109
  Receipt Date: 20101101
  Transmission Date: 20110411
  Serious: Yes (Other)
  Sender: FDA-Public Use
  Company Number: JHP201000341

PATIENT
  Sex: Female
  Weight: 2.3 kg

DRUGS (1)
  1. KETALAR [Suspect]
     Indication: DRUG EXPOSURE DURING PREGNANCY
     Dosage: TRANSPLACENTAL
     Route: 064

REACTIONS (9)
  - BREECH PRESENTATION [None]
  - CAESAREAN SECTION [None]
  - CEREBRAL DISORDER [None]
  - DRUG WITHDRAWAL SYNDROME NEONATAL [None]
  - FOETAL GROWTH RESTRICTION [None]
  - FOETAL TOBACCO EXPOSURE [None]
  - HYPOTONIA NEONATAL [None]
  - MATERNAL DRUGS AFFECTING FOETUS [None]
  - SMALL FOR DATES BABY [None]
